FAERS Safety Report 8297409-5 (Version None)
Quarter: 2012Q2

REPORT INFORMATION
  Report Type: 
  Country: None (occurrence: None)
  Receive Date: 20120419
  Receipt Date: 20120412
  Transmission Date: 20120825
  Serious: Yes (Other)
  Sender: FDA-Public Use
  Company Number: US-MYLANLABS-2012S1006359

PATIENT
  Age: 16 Year
  Sex: Female

DRUGS (5)
  1. TRI-SPRINTEC [Concomitant]
  2. AMNESTEEM [Suspect]
     Dosage: 40MG T,TH
     Route: 048
     Dates: start: 20110628, end: 20111201
  3. CLARAVIS [Suspect]
     Dates: start: 20111218, end: 20120114
  4. AMNESTEEM [Suspect]
     Dosage: 60MG M,W,F
     Route: 048
     Dates: start: 20110628, end: 20111201
  5. FISH OIL [Concomitant]

REACTIONS (5)
  - LYMPHOCYTE MORPHOLOGY ABNORMAL [None]
  - NEUTROPENIA [None]
  - LETHARGY [None]
  - ANAEMIA [None]
  - WHITE BLOOD CELL COUNT DECREASED [None]
